FAERS Safety Report 17162324 (Version 1)
Quarter: 2019Q4

REPORT INFORMATION
  Report Type: Spontaneous
  Country: US (occurrence: US)
  Receive Date: 20191122
  Receipt Date: 20191122
  Transmission Date: 20200122
  Serious: Yes (Death, Hospitalization)
  Sender: FDA-Public Use
  Company Number: None

PATIENT
  Age: 0 Year
  Sex: Female

DRUGS (1)
  1. TRACLEER [Suspect]
     Active Substance: BOSENTAN
     Indication: PULMONARY ARTERIAL HYPERTENSION
     Route: 048
     Dates: start: 20191025, end: 20191101

REACTIONS (4)
  - Oxygen saturation abnormal [None]
  - Condition aggravated [None]
  - Lung hyperinflation [None]
  - Pneumothorax [None]

NARRATIVE: CASE EVENT DATE: 20191114
